FAERS Safety Report 11821989 (Version 2)
Quarter: 2015Q4

REPORT INFORMATION
  Report Type: Report from Study
  Country: CH (occurrence: CH)
  Receive Date: 20151210
  Receipt Date: 20151223
  Transmission Date: 20160305
  Serious: Yes (Other)
  Sender: FDA-Public Use
  Company Number: CH-BAYER-2015-483528

PATIENT
  Age: 35 Year
  Sex: Female
  Weight: 66 kg

DRUGS (2)
  1. TAXOL [Concomitant]
     Active Substance: PACLITAXEL
  2. JAYDESS [Suspect]
     Active Substance: LEVONORGESTREL
     Dosage: 14 MCG/24HR, CONT
     Route: 015
     Dates: start: 20150916, end: 20151112

REACTIONS (1)
  - Breast cancer [Unknown]

NARRATIVE: CASE EVENT DATE: 20151027
